FAERS Safety Report 5729530-7 (Version None)
Quarter: 2008Q2

REPORT INFORMATION
  Report Type: 
  Country: None (occurrence: None)
  Receive Date: 20080501
  Receipt Date: 20080418
  Transmission Date: 20081010
  Serious: Yes (Hospitalization, Other)
  Sender: FDA-Public Use
  Company Number: 2008000920

PATIENT
  Age: 81 Year
  Sex: Female

DRUGS (5)
  1. TARCEVA [Suspect]
     Indication: NON-SMALL CELL LUNG CANCER
     Dosage: QD, ORAL
     Route: 048
  2. LISINOPRIL [Concomitant]
  3. DECADRON [Concomitant]
  4. WELLBUTRIN (AMFEBUMATONE HYDROCHLORIDE) [Concomitant]
  5. PROZAC [Concomitant]

REACTIONS (3)
  - CONVULSION [None]
  - DYSPHAGIA [None]
  - RASH [None]
